FAERS Safety Report 5642758-X (Version None)
Quarter: 2008Q1

REPORT INFORMATION
  Report Type: 
  Country: None (occurrence: None)
  Receive Date: 20080226
  Receipt Date: 20080213
  Transmission Date: 20080703
  Serious: Yes (Other)
  Sender: FDA-Public Use
  Company Number: E3810-01594-SPO-AU

PATIENT
  Age: 73 Year
  Sex: Male

DRUGS (7)
  1. RABEPRAZOLE SODIUM [Suspect]
     Indication: OESOPHAGEAL DISORDER
     Dosage: 20 MG, ORAL
     Route: 048
  2. BETA-CAROTENE (BETACAROTENE) [Concomitant]
  3. LYSINE (LYSINE) [Concomitant]
  4. SAW PALMETTO (SERENOA REPENS) [Concomitant]
  5. SELENIUM SULPHIDE (SELENIUM SULFIDE) [Concomitant]
  6. VITAMIN NOS (VITAMIN NOS) [Concomitant]
  7. ZINC (ZINC) [Concomitant]

REACTIONS (2)
  - BACK PAIN [None]
  - OSTEOPOROSIS [None]
